FAERS Safety Report 23994006 (Version 6)
Quarter: 2024Q4

REPORT INFORMATION
  Report Type: Report from Study
  Country: US (occurrence: US)
  Receive Date: 20240620
  Receipt Date: 20241003
  Transmission Date: 20250114
  Serious: Yes (Other)
  Sender: GILEAD
  Company Number: US-GILEAD-2024-0677862

PATIENT
  Age: 77 Year
  Sex: Female

DRUGS (5)
  1. AMBRISENTAN [Suspect]
     Active Substance: AMBRISENTAN
     Indication: Pulmonary arterial hypertension
     Dosage: 10 MG, QD
     Route: 065
     Dates: start: 201611
  2. AMBRISENTAN [Suspect]
     Active Substance: AMBRISENTAN
     Dosage: 10 MG, QD
     Route: 065
     Dates: start: 202110
  3. ADCIRCA [Suspect]
     Active Substance: TADALAFIL
     Indication: Pulmonary arterial hypertension
     Dosage: 40 MG, QD
     Route: 065
     Dates: start: 202104
  4. TYVASO DPI [Suspect]
     Active Substance: TREPROSTINIL
     Indication: Pulmonary arterial hypertension
     Dosage: 48 UG, QID
     Route: 065
     Dates: start: 202407
  5. TYVASO DPI [Suspect]
     Active Substance: TREPROSTINIL
     Dosage: 16 UG, QID
     Route: 065
     Dates: start: 202407

REACTIONS (16)
  - Bendopnoea [Not Recovered/Not Resolved]
  - Dyspnoea at rest [Not Recovered/Not Resolved]
  - Chest discomfort [Not Recovered/Not Resolved]
  - Oropharyngeal pain [Unknown]
  - Dysphonia [Unknown]
  - Diplopia [Unknown]
  - Tremor [Recovered/Resolved]
  - Heart rate increased [Recovered/Resolved]
  - Malaise [Recovered/Resolved]
  - Dyspnoea exertional [Not Recovered/Not Resolved]
  - Fatigue [Unknown]
  - Dizziness [Recovered/Resolved]
  - Headache [Not Recovered/Not Resolved]
  - Dyspnoea [Unknown]
  - Oedema peripheral [Unknown]
  - Hypotension [Unknown]
